FAERS Safety Report 23716234 (Version 1)
Quarter: 2024Q2

REPORT INFORMATION
  Report Type: Spontaneous
  Country: IT (occurrence: IT)
  Receive Date: 20240408
  Receipt Date: 20240408
  Transmission Date: 20240717
  Serious: Yes (Death, Other)
  Sender: FDA-Public Use
  Company Number: IT-CELLTRION HEALTHCARE HUNGARY KFT-2024IT005600

PATIENT
  Age: 68 Year
  Sex: Male

DRUGS (6)
  1. BORTEZOMIB [Suspect]
     Active Substance: BORTEZOMIB
     Indication: Mantle cell lymphoma stage IV
     Dosage: UNK
     Route: 065
  2. BENDAMUSTINE [Suspect]
     Active Substance: BENDAMUSTINE
     Indication: Mantle cell lymphoma stage IV
     Dosage: 70 MG/M2 DOSED ON DAYS 2 AND 3 (R-BAC)
     Route: 065
  3. CYTARABINE [Suspect]
     Active Substance: CYTARABINE
     Indication: Mantle cell lymphoma stage IV
     Dosage: DOSED ON 3 AND 4, Q28 DAYS (R-BAC)
     Route: 065
  4. IBRUTINIB [Suspect]
     Active Substance: IBRUTINIB
     Indication: Mantle cell lymphoma stage IV
     Dosage: 560 MG, EVERY DAY THERAPY STOPPED AFTER ONE MONTH
     Route: 065
     Dates: start: 201911
  5. RITUXIMAB [Suspect]
     Active Substance: RITUXIMAB
     Indication: Mantle cell lymphoma stage IV
     Dosage: 375 MG/M2 DOSED ON DAY 1 (R-BAC)
     Route: 065
  6. RITUXIMAB [Suspect]
     Active Substance: RITUXIMAB
     Dosage: MAINTENANCE THERAPY (R-BAC)
     Route: 065

REACTIONS (4)
  - Death [Fatal]
  - Disease progression [Fatal]
  - Drug ineffective [Fatal]
  - Intentional product use issue [Unknown]
